FAERS Safety Report 8535264-6 (Version None)
Quarter: 2012Q3

REPORT INFORMATION
  Report Type: 
  Country: None (occurrence: None)
  Receive Date: 20120725
  Receipt Date: 20120720
  Transmission Date: 20120928
  Serious: Yes (Other)
  Sender: FDA-Public Use
  Company Number: GB-009507513-1207GBR008509

PATIENT

DRUGS (8)
  1. ASPIRIN [Concomitant]
     Dosage: UNK
     Dates: start: 20120112
  2. NOVORAPID [Concomitant]
     Dosage: UNK
     Dates: start: 20120112
  3. TRAMADOL HCL [Concomitant]
     Dosage: UNK
     Dates: start: 20120508, end: 20120518
  4. JANUVIA [Suspect]
     Dosage: UNK
     Route: 048
     Dates: start: 20120704
  5. CANDESARTAN [Concomitant]
     Dosage: UNK
  6. LEVEMIR [Concomitant]
     Dosage: UNK
     Dates: start: 20120112
  7. AMLODIPINE [Concomitant]
     Dosage: UNK
     Dates: start: 20120504
  8. ATORVASTATIN [Concomitant]
     Dosage: UNK
     Dates: start: 20120112

REACTIONS (1)
  - PAIN IN EXTREMITY [None]
